FAERS Safety Report 8393945-1 (Version None)
Quarter: 2012Q2

REPORT INFORMATION
  Report Type: 
  Country: None (occurrence: None)
  Receive Date: 20120530
  Receipt Date: 20120522
  Transmission Date: 20120825
  Serious: Yes (Hospitalization, Other)
  Sender: FDA-Public Use
  Company Number: SA-PAR PHARMACEUTICAL, INC-2012SCPR004395

PATIENT

DRUGS (3)
  1. PHENYTOIN [Suspect]
     Indication: GRAND MAL CONVULSION
     Dosage: UNK, UNKNOWN
     Route: 065
  2. LAMOTRGINE [Suspect]
     Indication: GRAND MAL CONVULSION
     Dosage: 200 MG, / DAY
     Route: 065
  3. LEVETIRACETAM [Suspect]
     Indication: GRAND MAL CONVULSION
     Dosage: 500 MG, / DAY
     Route: 065

REACTIONS (3)
  - ANGIOEDEMA [None]
  - DRUG HYPERSENSITIVITY [None]
  - RASH MACULO-PAPULAR [None]
